FAERS Safety Report 6659525-0 (Version None)
Quarter: 2010Q1

REPORT INFORMATION
  Report Type: 
  Country: None (occurrence: None)
  Receive Date: 20100330
  Receipt Date: 20100312
  Transmission Date: 20100710
  Serious: Yes (Other)
  Sender: FDA-Public Use
  Company Number: US-JNJFOC-20100301239

PATIENT
  Sex: Female
  Weight: 55.34 kg

DRUGS (2)
  1. ULTRAM [Suspect]
     Indication: PAIN
     Dosage: 3 TIMES IN 1 DAY
     Route: 048
  2. TRAMADOL HCL [Suspect]
     Indication: PAIN

REACTIONS (2)
  - FALL [None]
  - INFLUENZA LIKE ILLNESS [None]
